FAERS Safety Report 11766713 (Version 2)
Quarter: 2015Q4

REPORT INFORMATION
  Report Type: Spontaneous
  Country: US (occurrence: US)
  Receive Date: 20151123
  Receipt Date: 20151202
  Transmission Date: 20160304
  Serious: Yes (Other)
  Sender: FDA-Public Use
  Company Number: US-ELI_LILLY_AND_COMPANY-US201510009074

PATIENT
  Age: 68 Year
  Sex: Female

DRUGS (3)
  1. METFORMIN [Concomitant]
     Active Substance: METFORMIN HYDROCHLORIDE
     Route: 065
  2. TRULICITY [Suspect]
     Active Substance: DULAGLUTIDE
     Indication: TYPE 2 DIABETES MELLITUS
     Dosage: 0.75 MG, WEEKLY (1/W)
     Route: 065
     Dates: start: 20150918, end: 201511
  3. GLIPIRIDE [Concomitant]
     Active Substance: GLIMEPIRIDE
     Route: 065

REACTIONS (8)
  - Weight decreased [Recovering/Resolving]
  - Hyperhidrosis [Recovering/Resolving]
  - Tinnitus [Recovering/Resolving]
  - Decreased appetite [Recovering/Resolving]
  - Neck pain [Recovering/Resolving]
  - Nodule [Recovering/Resolving]
  - Constipation [Not Recovered/Not Resolved]
  - Mass [Recovering/Resolving]

NARRATIVE: CASE EVENT DATE: 20151019
